FAERS Safety Report 8837485 (Version 1)
Quarter: 2012Q4

REPORT INFORMATION
  Report Type: 
  Country: US (occurrence: US)
  Receive Date: 20121012
  Receipt Date: 20121012
  Transmission Date: 20130627
  Serious: No
  Sender: FDA-Public Use
  Company Number: US-PFIZER INC-2012251364

PATIENT
  Age: 85 Year
  Sex: Male
  Weight: 97.51 kg

DRUGS (1)
  1. SUTENT [Suspect]
     Indication: BONE NEOPLASM MALIGNANT
     Dosage: 50 mg, daily
     Route: 048
     Dates: start: 20120906, end: 201209

REACTIONS (8)
  - Tremor [Recovering/Resolving]
  - Fall [Unknown]
  - Dysstasia [Not Recovered/Not Resolved]
  - Malaise [Recovering/Resolving]
  - Asthenia [Recovering/Resolving]
  - Activities of daily living impaired [Not Recovered/Not Resolved]
  - Madarosis [Not Recovered/Not Resolved]
  - Oral pain [Not Recovered/Not Resolved]
